FAERS Safety Report 13515540 (Version 6)
Quarter: 2017Q3

REPORT INFORMATION
  Report Type: Report from Study
  Country: US (occurrence: US)
  Receive Date: 20170504
  Receipt Date: 20170922
  Transmission Date: 20171127
  Serious: Yes (Death, Hospitalization, Other)
  Sender: FDA-Public Use
  Company Number: US-ACTELION-A-NJ2017-153267

PATIENT
  Age: 71 Year
  Sex: Female

DRUGS (10)
  1. LANTUS [Concomitant]
     Active Substance: INSULIN GLARGINE
  2. SPIRONOLACTON [Concomitant]
     Active Substance: SPIRONOLACTONE
  3. DELZICOL [Concomitant]
     Active Substance: MESALAMINE
  4. OPSUMIT [Suspect]
     Active Substance: MACITENTAN
     Indication: PULMONARY ARTERIAL HYPERTENSION
     Dosage: 10 MG, QD
     Route: 048
     Dates: start: 20140828, end: 20170602
  5. HUMALOG [Concomitant]
     Active Substance: INSULIN LISPRO
  6. LEVOTHYROXIN [Concomitant]
     Active Substance: LEVOTHYROXINE
  7. FUROSEMIDE. [Concomitant]
     Active Substance: FUROSEMIDE
  8. SILDENAFIL. [Concomitant]
     Active Substance: SILDENAFIL
  9. PANTOPRAZOLE [Concomitant]
     Active Substance: PANTOPRAZOLE
  10. BUMETANIDE. [Concomitant]
     Active Substance: BUMETANIDE

REACTIONS (6)
  - Anaemia [Fatal]
  - Pneumonia [Not Recovered/Not Resolved]
  - Haemorrhage [Fatal]
  - Influenza [Not Recovered/Not Resolved]
  - Renal failure [Fatal]
  - Transfusion [Unknown]

NARRATIVE: CASE EVENT DATE: 20150123
